FAERS Safety Report 7763519-1 (Version None)
Quarter: 2011Q3

REPORT INFORMATION
  Report Type: 
  Country: None (occurrence: None)
  Receive Date: 20110920
  Receipt Date: 20110914
  Transmission Date: 20111222
  Serious: Yes (Hospitalization)
  Sender: FDA-Public Use
  Company Number: CO-B.I. PHARMACEUTICALS,INC./RIDGEFIELD-2011-RA-00278RA

PATIENT
  Age: 75 Year
  Sex: Male

DRUGS (2)
  1. AMIODARONA [Concomitant]
  2. PRADAXA [Suspect]
     Indication: PROPHYLAXIS
     Dosage: 300 MG
     Route: 048

REACTIONS (4)
  - HYPERHIDROSIS [None]
  - HEADACHE [None]
  - ANXIETY [None]
  - MIGRAINE [None]
